FAERS Safety Report 24588791 (Version 1)
Quarter: 2024Q4

REPORT INFORMATION
  Report Type: Spontaneous
  Country: US (occurrence: US)
  Receive Date: 20241107
  Receipt Date: 20241107
  Transmission Date: 20250115
  Serious: Yes (Hospitalization)
  Sender: STRIDES
  Company Number: US-STRIDES ARCOLAB LIMITED-2024SP014313

PATIENT
  Age: 7 Week
  Sex: Male

DRUGS (1)
  1. NYSTATIN [Suspect]
     Active Substance: NYSTATIN
     Indication: Oral candidiasis
     Dosage: UNK
     Route: 065

REACTIONS (4)
  - Histoplasmosis [Unknown]
  - Appendicitis [Unknown]
  - Therapy non-responder [Unknown]
  - Off label use [Unknown]
